FAERS Safety Report 4410708-X (Version None)
Quarter: 2004Q3

REPORT INFORMATION
  Report Type: 
  Country: None (occurrence: None)
  Receive Date: 20040728
  Receipt Date: 20040728
  Transmission Date: 20050211
  Serious: Yes (Hospitalization, Other)
  Sender: FDA-Public Use
  Company Number: None

PATIENT
  Age: 53 Year
  Sex: Female
  Weight: 93.2595 kg

DRUGS (6)
  1. PHENYTOIN [Suspect]
     Indication: CONVULSION PROPHYLAXIS
     Dosage: 300 MG PO DAILY
     Route: 048
  2. ALLEGRA [Concomitant]
  3. ADVAIR DISKUS 100/50 [Concomitant]
  4. NASACORT [Concomitant]
  5. ALBUTEROL [Concomitant]
  6. HYDROCHLOROTHIAZIDE [Concomitant]

REACTIONS (4)
  - DIZZINESS [None]
  - FALL [None]
  - FATIGUE [None]
  - HEAD INJURY [None]
